FAERS Safety Report 6044358-9 (Version None)
Quarter: 2009Q1

REPORT INFORMATION
  Report Type: 
  Country: None (occurrence: None)
  Receive Date: 20090115
  Receipt Date: 20090115
  Transmission Date: 20090719
  Serious: Yes (Other)
  Sender: FDA-Public Use
  Company Number: None

PATIENT
  Age: 74 Year
  Sex: Male
  Weight: 113.3993 kg

DRUGS (2)
  1. CARVEDILOL [Suspect]
     Indication: CARDIAC FAILURE CONGESTIVE
     Dosage: 25 MG EVERY 12HR PO
     Route: 048
     Dates: start: 20081125, end: 20081231
  2. CARVEDILOL [Suspect]
     Indication: HYPERTENSION
     Dosage: 25 MG EVERY 12HR PO
     Route: 048
     Dates: start: 20081125, end: 20081231

REACTIONS (2)
  - MEDICATION RESIDUE [None]
  - PRODUCT QUALITY ISSUE [None]
